FAERS Safety Report 6389118-4 (Version None)
Quarter: 2009Q4

REPORT INFORMATION
  Report Type: 
  Country: None (occurrence: None)
  Receive Date: 20091006
  Receipt Date: 20070809
  Transmission Date: 20100525
  Serious: Yes (Other)
  Sender: FDA-Public Use
  Company Number: US-ASTRAZENECA-2006UW08465

PATIENT
  Age: 537 Month
  Sex: Female
  Weight: 97.5 kg

DRUGS (11)
  1. SEROQUEL [Suspect]
     Indication: DEPRESSION
     Route: 048
     Dates: start: 19970101
  2. SEROQUEL [Suspect]
     Indication: ANXIETY
     Route: 048
     Dates: start: 19970101
  3. SEROQUEL [Suspect]
     Dosage: 25-100 MG DAILY
     Route: 048
     Dates: start: 20001029
  4. SEROQUEL [Suspect]
     Dosage: 25-100 MG DAILY
     Route: 048
     Dates: start: 20001029
  5. CLONAZEPAM [Concomitant]
     Dates: start: 19990101, end: 20000101
  6. ZOLOFT [Concomitant]
  7. EFFEXOR XR [Concomitant]
  8. EFFEXOR XR [Concomitant]
     Dosage: 75-300 MG DAILY
     Dates: start: 20040204
  9. DESYREL [Concomitant]
     Dosage: 100-300 MG AT BEDTIME
     Dates: start: 20040204
  10. VALIUM [Concomitant]
     Dosage: 5-20 MG DAILY
     Dates: start: 20040202
  11. KLONOPIN [Concomitant]
     Dates: start: 20001029

REACTIONS (6)
  - DIABETES MELLITUS [None]
  - DIABETIC COMA [None]
  - DIABETIC KETOACIDOSIS [None]
  - HYPERGLYCAEMIA [None]
  - NEUROPATHY PERIPHERAL [None]
  - TYPE 1 DIABETES MELLITUS [None]
